FAERS Safety Report 9024920 (Version 1)
Quarter: 2012Q4

REPORT INFORMATION
  Report Type: Spontaneous
  Country: US (occurrence: None)
  Receive Date: 20121231
  Receipt Date: 20121231
  Transmission Date: 20130627
  Serious: Yes (Death, Hospitalization)
  Sender: FDA-Public Use
  Company Number: US-JNJFOC-20121211640

PATIENT
  Age: 73 Year
  Sex: Male
  Weight: 79.9 kg

DRUGS (3)
  1. DECITABINE [Suspect]
     Indication: ACUTE MYELOID LEUKAEMIA
     Dosage: in 1 cyclical
     Route: 042
     Dates: start: 20121008
  2. DECITABINE [Suspect]
     Indication: ACUTE MYELOID LEUKAEMIA
     Dosage: in 1 cyclical
     Route: 042
  3. DECITABINE [Suspect]
     Indication: ACUTE MYELOID LEUKAEMIA
     Dosage: in 1 cyclical
     Route: 042
     Dates: start: 20121205, end: 20121205

REACTIONS (7)
  - Renal failure acute [None]
  - Atrial fibrillation [None]
  - Delirium [None]
  - Confusional state [None]
  - White blood cell count increased [None]
  - Cardiac arrest [None]
  - Renal failure [None]
